FAERS Safety Report 16906459 (Version 2)
Quarter: 2019Q4

REPORT INFORMATION
  Report Type: Spontaneous
  Country: US (occurrence: US)
  Receive Date: 20191011
  Receipt Date: 20191023
  Transmission Date: 20200122
  Serious: Yes (Death, Hospitalization, Other)
  Sender: FDA-Public Use
  Company Number: US-ADVANZ PHARMA-201910001038

PATIENT

DRUGS (2)
  1. PILOCARPINE. [Suspect]
     Active Substance: PILOCARPINE
     Indication: SJOGREN^S SYNDROME
     Dosage: UNK
     Route: 048
  2. RIVAROXABAN [Concomitant]
     Active Substance: RIVAROXABAN
     Indication: ATRIAL FIBRILLATION
     Dosage: UNK

REACTIONS (10)
  - Drug withdrawal syndrome [Fatal]
  - Tachycardia [Unknown]
  - Body temperature increased [Unknown]
  - Hypotension [Unknown]
  - Abdominal pain [Unknown]
  - Leukocytosis [Unknown]
  - Lactic acidosis [Unknown]
  - Hypoxia [Unknown]
  - Tachypnoea [Unknown]
  - Acute kidney injury [Unknown]
